FAERS Safety Report 6620614 (Version 18)
Quarter: 2014Q1

REPORT INFORMATION
  Report Type: Spontaneous
  Country: US (occurrence: US)
  Receive Date: 20080422
  Receipt Date: 20140211
  Transmission Date: 20141002
  Serious: Yes (Death, Hospitalization, Other)
  Sender: FDA-Public Use
  Company Number: PHEH2008US03781

PATIENT
  Age: 25 Year
  Sex: Female

DRUGS (65)
  1. AREDIA [Suspect]
     Route: 041
  2. ZOMETA [Suspect]
     Route: 041
  3. CHEMOTHERAPEUTICS,OTHER [Concomitant]
  4. RADIATION THERAPY [Concomitant]
  5. CHLORHEXIDINE [Concomitant]
  6. COUMADIN ^BOOTS^ [Concomitant]
  7. KLOR-CON [Concomitant]
  8. MAGNESIUM OXIDE [Concomitant]
  9. MELATONIN [Concomitant]
  10. NEXIUM [Concomitant]
  11. OXYCODONE [Concomitant]
  12. OXYCONTIN [Concomitant]
  13. PAXIL [Concomitant]
  14. PENICILLIN ^GRUNENTHAL^ [Concomitant]
  15. SENNA [Concomitant]
  16. YEAST [Concomitant]
  17. CEPHALEXIN [Concomitant]
  18. PRILOSEC [Concomitant]
  19. REGLAN [Concomitant]
     Dosage: 10 MG, QID
  20. MACROBID [Concomitant]
     Dosage: 100 MG, QHS
  21. ZANTAC [Concomitant]
  22. LORAZEPAM [Concomitant]
     Dosage: 2 MG, QHS
     Route: 048
  23. MECLOMEN [Concomitant]
  24. METHADONE [Concomitant]
     Dosage: 10 MG, PRN
  25. ORTHO-CEPT [Concomitant]
     Route: 048
  26. PHAZYME [Concomitant]
     Route: 048
  27. PROZAC [Concomitant]
  28. OXYIR [Concomitant]
     Dosage: 5 MG, Q4H
  29. CIPROFLOXACIN [Concomitant]
  30. PREDNISONE [Concomitant]
     Indication: DYSPNOEA
  31. AVELOX [Concomitant]
     Indication: PNEUMONIA
  32. LASIX [Concomitant]
     Indication: OEDEMA
  33. THALIDOMIDE [Concomitant]
     Indication: RENAL CELL CARCINOMA
  34. ARGATROBAN [Concomitant]
     Indication: DEEP VEIN THROMBOSIS
  35. XELODA [Concomitant]
     Indication: RENAL CELL CARCINOMA
  36. GEMCITABINE [Concomitant]
     Indication: RENAL CELL CARCINOMA
  37. CYTOXAN [Concomitant]
     Indication: RENAL CELL CARCINOMA
  38. QUINOLONE ANTIBACTERIALS [Concomitant]
     Indication: RESPIRATORY TRACT INFECTION
  39. DOXYCYCLINE [Concomitant]
     Indication: RESPIRATORY TRACT INFECTION
  40. TEQUIN [Concomitant]
     Indication: PYREXIA
  41. DIFLUCAN [Concomitant]
     Indication: PYREXIA
  42. LOVENOX [Concomitant]
     Indication: PROPHYLAXIS
  43. CYMBALTA [Concomitant]
     Dosage: 60 MG, QD
  44. RISPERDAL [Concomitant]
  45. SEROQUEL [Concomitant]
     Dates: end: 20090729
  46. CELEXA [Concomitant]
     Indication: PSYCHOTIC DISORDER
     Dosage: 60 MG, QD
  47. OXYGEN [Concomitant]
     Indication: HYPOXIA
  48. NEURONTIN [Concomitant]
     Dosage: 300 MG, TID
  49. DEPO PROVERA [Concomitant]
  50. ORAL CONTRACEPTIVE NOS [Concomitant]
  51. DILAUDID [Concomitant]
  52. LEXAPRO [Concomitant]
  53. MARCAINE [Concomitant]
  54. VICODIN [Concomitant]
  55. XANAX [Concomitant]
  56. BACTRIM [Concomitant]
     Route: 048
  57. VIOXX [Concomitant]
     Dosage: 25 MG, QD
     Route: 048
  58. AMBIEN [Concomitant]
     Route: 048
  59. COMPAZINE [Concomitant]
     Dosage: 10 MG, PRN
  60. BIAXIN [Concomitant]
     Dosage: 250 MG, BID
     Route: 048
  61. RITALIN [Concomitant]
     Dosage: 80 MG, BID
  62. TETRACYCLINE [Concomitant]
  63. BLOOD AND RELATED PRODUCTS [Concomitant]
  64. KEFLEX                                  /UNK/ [Concomitant]
  65. OXYFAST [Concomitant]

REACTIONS (99)
  - Death [Fatal]
  - Osteonecrosis of jaw [Unknown]
  - Pain [Unknown]
  - Infection [Unknown]
  - Deformity [Unknown]
  - Small intestinal obstruction [Unknown]
  - Paraesthesia [Unknown]
  - Musculoskeletal pain [Unknown]
  - Pain in extremity [Unknown]
  - Cellulitis [Unknown]
  - Dyspnoea [Unknown]
  - Respiratory failure [Unknown]
  - Hypoxia [Unknown]
  - Lung infiltration [Unknown]
  - Malignant neoplasm progression [Unknown]
  - Interstitial lung disease [Unknown]
  - Deep vein thrombosis [Unknown]
  - Spinal cord disorder [Unknown]
  - Osteomyelitis [Unknown]
  - Bone disorder [Unknown]
  - Breath odour [Unknown]
  - Discomfort [Unknown]
  - Actinomyces test positive [Unknown]
  - Amnesia [Unknown]
  - Seborrhoeic keratosis [Unknown]
  - Acute psychosis [Recovered/Resolved]
  - Hallucination, auditory [Recovered/Resolved]
  - Delirium [Unknown]
  - Paranoia [Unknown]
  - Hypokalaemia [Unknown]
  - Speech disorder [Unknown]
  - Candida infection [Unknown]
  - Asthenia [Unknown]
  - Dizziness [Unknown]
  - Headache [Unknown]
  - Stomatitis [Unknown]
  - Urinary tract infection [Unknown]
  - Local swelling [Unknown]
  - Chronic sinusitis [Unknown]
  - Insomnia [Unknown]
  - Weight decreased [Unknown]
  - Pyelocaliectasis [Unknown]
  - Vomiting [Unknown]
  - Constipation [Unknown]
  - Thrombocytopenia [Unknown]
  - Pancytopenia [Unknown]
  - Bronchitis [Unknown]
  - Pneumonia [Recovering/Resolving]
  - Cervical dysplasia [Unknown]
  - Keratitis [Unknown]
  - Metastases to bone [Unknown]
  - Bone lesion [Unknown]
  - Vaginal haemorrhage [Unknown]
  - Amenorrhoea [Unknown]
  - Scar [Unknown]
  - Oesophageal stenosis [Unknown]
  - Impaired gastric emptying [Unknown]
  - Osteosclerosis [Unknown]
  - Tooth loss [Unknown]
  - Nodule [Unknown]
  - Fibrosis [Unknown]
  - Fistula discharge [Unknown]
  - Dental fistula [Unknown]
  - Obstructive airways disorder [Unknown]
  - Hypoaesthesia oral [Unknown]
  - Actinomycosis [Unknown]
  - Asthma [Unknown]
  - Brain neoplasm [Unknown]
  - Bone pain [Unknown]
  - Lymphadenopathy [Unknown]
  - Bone marrow oedema [Unknown]
  - Arthritis [Unknown]
  - Pain in jaw [Unknown]
  - Osteoporosis [Unknown]
  - Ovarian cyst [Unknown]
  - Pulmonary embolism [Unknown]
  - Pleural effusion [Unknown]
  - Neuropathy peripheral [Unknown]
  - Metastases to lymph nodes [Unknown]
  - Peripheral nerve lesion [Unknown]
  - Tracheobronchitis [Unknown]
  - Oesophageal candidiasis [Unknown]
  - Anaemia [Unknown]
  - Confusional state [Unknown]
  - Mitral valve incompetence [Unknown]
  - Tricuspid valve incompetence [Unknown]
  - Encephalomalacia [Unknown]
  - Haemoptysis [Unknown]
  - Epistaxis [Unknown]
  - Respiratory acidosis [Unknown]
  - Sciatica [Unknown]
  - Tachycardia [Unknown]
  - Restlessness [Unknown]
  - Pyrexia [Unknown]
  - Fatigue [Unknown]
  - Chest pain [Unknown]
  - Oedema [Unknown]
  - Decreased appetite [Unknown]
  - Lethargy [Unknown]
